FAERS Safety Report 8968935 (Version 1)
Quarter: 2012Q4

REPORT INFORMATION
  Report Type: 
  Country: US (occurrence: US)
  Receive Date: 20121218
  Receipt Date: 20121218
  Transmission Date: 20130627
  Serious: No
  Sender: FDA-Public Use
  Company Number: US-BRISTOL-MYERS SQUIBB COMPANY-16686867

PATIENT
  Age: 5 None
  Sex: Female
  Weight: 72.56 kg

DRUGS (3)
  1. ABILIFY [Suspect]
     Dates: start: 2006
  2. LEXAPRO [Suspect]
  3. LAMICTAL [Suspect]

REACTIONS (1)
  - Blood cholesterol increased [Unknown]
